FAERS Safety Report 12694917 (Version 1)
Quarter: 2016Q3

REPORT INFORMATION
  Report Type: Report from Study
  Country: US (occurrence: US)
  Receive Date: 20160829
  Receipt Date: 20160829
  Transmission Date: 20161109
  Serious: Yes (Other)
  Sender: FDA-Public Use
  Company Number: US-ABBVIE-16K-163-1707671-00

PATIENT
  Sex: Male

DRUGS (1)
  1. HUMIRA [Suspect]
     Active Substance: ADALIMUMAB
     Indication: RHEUMATOID ARTHRITIS
     Route: 058
     Dates: start: 20140207

REACTIONS (4)
  - Hypoaesthesia [Unknown]
  - Burning sensation [Unknown]
  - Adhesion [Unknown]
  - Hernia [Unknown]

NARRATIVE: CASE EVENT DATE: 2016
